FAERS Safety Report 18828861 (Version 2)
Quarter: 2024Q3

REPORT INFORMATION
  Report Type: Report from Study
  Country: IN (occurrence: None)
  Receive Date: 20210201
  Receipt Date: 20240718
  Transmission Date: 20241016
  Serious: No
  Sender: ASTRAZENECA
  Company Number: 2021A010660

PATIENT
  Sex: Female

DRUGS (1)
  1. TAGRISSO [Suspect]
     Active Substance: OSIMERTINIB
     Indication: Lung neoplasm malignant
     Route: 048
     Dates: start: 20200911, end: 20210117

REACTIONS (2)
  - Diarrhoea haemorrhagic [Unknown]
  - Vomiting [Unknown]
